FAERS Safety Report 7692714-5 (Version None)
Quarter: 2011Q3

REPORT INFORMATION
  Report Type: 
  Country: None (occurrence: None)
  Receive Date: 20110819
  Receipt Date: 20110810
  Transmission Date: 20111222
  Serious: No
  Sender: FDA-Public Use
  Company Number: US-PFIZER INC-2011184780

PATIENT
  Sex: Female

DRUGS (2)
  1. METFORMIN [Concomitant]
     Indication: DIABETES MELLITUS
     Dosage: 1000 MG, 1X/DAY
     Route: 048
  2. LATANOPROST [Suspect]
     Indication: INTRAOCULAR PRESSURE INCREASED
     Dosage: 1 GTT, 1X/DAY AT BEDTIME IN BOTH EYES
     Route: 047
     Dates: start: 20110805

REACTIONS (6)
  - IMMUNE SYSTEM DISORDER [None]
  - UPPER RESPIRATORY TRACT INFECTION [None]
  - COUGH [None]
  - RHINORRHOEA [None]
  - NASAL DISORDER [None]
  - OROPHARYNGEAL PAIN [None]
